FAERS Safety Report 8076621-4 (Version None)
Quarter: 2012Q1

REPORT INFORMATION
  Report Type: 
  Country: None (occurrence: None)
  Receive Date: 20120127
  Receipt Date: 20120117
  Transmission Date: 20120608
  Serious: Yes (Hospitalization)
  Sender: FDA-Public Use
  Company Number: US-JNJFOC-20120106998

PATIENT
  Sex: Male
  Weight: 70.31 kg

DRUGS (4)
  1. TRAZODONE HCL [Concomitant]
     Indication: SLEEP DISORDER
     Route: 048
     Dates: start: 20110101
  2. ASPIRIN [Concomitant]
     Indication: CARDIAC DISORDER
     Route: 048
     Dates: start: 20120112
  3. XARELTO [Suspect]
     Indication: HIP ARTHROPLASTY
     Route: 048
     Dates: start: 20120110, end: 20120115
  4. ASPIRIN [Concomitant]
     Route: 048
     Dates: end: 20111201

REACTIONS (3)
  - RASH GENERALISED [None]
  - PRURITUS [None]
  - INSOMNIA [None]
